FAERS Safety Report 4453999-1 (Version None)
Quarter: 2004Q3

REPORT INFORMATION
  Report Type: 
  Country: None (occurrence: None)
  Receive Date: 20040826
  Receipt Date: 20040513
  Transmission Date: 20050211
  Serious: No
  Sender: FDA-Public Use
  Company Number: WAES 0403USA00133

PATIENT
  Age: 57 Year
  Sex: Female
  Weight: 67.1324 kg

DRUGS (1)
  1. ZETIA [Suspect]
     Indication: HYPERLIPIDAEMIA
     Dosage: 10 MG/DAILY/PO
     Route: 048
     Dates: start: 20031101

REACTIONS (5)
  - ABDOMINAL DISCOMFORT [None]
  - FATIGUE [None]
  - MEDICATION ERROR [None]
  - SLUGGISHNESS [None]
  - URINARY TRACT INFECTION [None]
